FAERS Safety Report 9330272 (Version 4)
Quarter: 2013Q3

REPORT INFORMATION
  Report Type: Spontaneous
  Country: DE (occurrence: DE)
  Receive Date: 20130605
  Receipt Date: 20130702
  Transmission Date: 20140515
  Serious: Yes (Hospitalization, Other)
  Sender: FDA-Public Use
  Company Number: DE-ROCHE-1232045

PATIENT
  Age: 45 Year
  Sex: Female

DRUGS (10)
  1. XOLAIR [Suspect]
     Indication: ASTHMA
     Dosage: 2 DF
     Route: 058
     Dates: start: 201112, end: 201305
  2. XOLAIR [Suspect]
     Dosage: 1 DF WEEKLY
     Route: 058
     Dates: start: 201305
  3. XOLAIR [Suspect]
     Route: 065
     Dates: start: 20130508
  4. SINGULAIR [Concomitant]
  5. UNIPHYLLIN [Concomitant]
     Route: 065
  6. PANTOPRAZOLE [Concomitant]
  7. PREDNISOLONE [Concomitant]
  8. ATMADISC [Concomitant]
  9. CALCIUM D3 [Concomitant]
  10. AVAMYS [Concomitant]
     Dosage: NASAL SPRAY
     Route: 065

REACTIONS (7)
  - Serum sickness [Recovered/Resolved]
  - Inappropriate schedule of drug administration [Unknown]
  - Drug hypersensitivity [Unknown]
  - Asthma [Unknown]
  - Rheumatic disorder [Unknown]
  - Proteinuria [Unknown]
  - Arthritis [Unknown]
